FAERS Safety Report 24391592 (Version 1)
Quarter: 2024Q4

REPORT INFORMATION
  Report Type: Spontaneous
  Country: NP (occurrence: NP)
  Receive Date: 20241003
  Receipt Date: 20241003
  Transmission Date: 20250115
  Serious: Yes (Death)
  Sender: PFIZER
  Company Number: NP-PFIZER INC-PV202400128028

PATIENT
  Age: 68 Year
  Sex: Male

DRUGS (1)
  1. XALKORI [Suspect]
     Active Substance: CRIZOTINIB
     Indication: Non-small cell lung cancer
     Dosage: 250 MG, 2X/DAY

REACTIONS (1)
  - Death [Fatal]

NARRATIVE: CASE EVENT DATE: 20231210
